FAERS Safety Report 25046488 (Version 3)
Quarter: 2025Q3

REPORT INFORMATION
  Report Type: Spontaneous
  Country: JP (occurrence: JP)
  Receive Date: 20250306
  Receipt Date: 20250702
  Transmission Date: 20251021
  Serious: Yes (Hospitalization, Other)
  Sender: MERCK SHARP & DOHME LLC
  Company Number: JP-MSD-M2024-17457

PATIENT
  Age: 64 Year
  Sex: Female

DRUGS (3)
  1. KEYTRUDA [Suspect]
     Active Substance: PEMBROLIZUMAB
     Indication: Uterine cancer
     Dosage: DOSE DESCRIPTION : 200 MILLIGRAM, Q3W?DAILY DOSE : 9.4 MILLIGRAM?REGIMEN DOSE : 2400  MILLIGRAM
     Route: 041
     Dates: start: 20240401, end: 20241121
  2. LENVATINIB MESYLATE [Suspect]
     Active Substance: LENVATINIB MESYLATE
     Indication: Uterine cancer
     Dosage: STRENGTH: 10 MG
     Route: 048
     Dates: start: 20240401, end: 20240422
  3. LENVATINIB MESYLATE [Suspect]
     Active Substance: LENVATINIB MESYLATE
     Indication: Uterine cancer
     Dosage: STRENGTH: 10 MG
     Route: 048
     Dates: start: 20240429, end: 20250121

REACTIONS (13)
  - Female genital tract fistula [Recovered/Resolved]
  - Malignant neoplasm progression [Unknown]
  - Vaginal infection [Recovered/Resolved]
  - Vulval ulceration [Not Recovered/Not Resolved]
  - Fatigue [Recovering/Resolving]
  - Dysphonia [Recovering/Resolving]
  - Fatigue [Unknown]
  - Dysphonia [Unknown]
  - Impaired healing [Unknown]
  - Urogenital fistula [Unknown]
  - Infection [Unknown]
  - Angiopathy [Unknown]
  - Product use issue [Unknown]

NARRATIVE: CASE EVENT DATE: 20240101
